FAERS Safety Report 15886281 (Version 1)
Quarter: 2019Q1

REPORT INFORMATION
  Report Type: Spontaneous
  Country: US (occurrence: US)
  Receive Date: 20190129
  Receipt Date: 20190129
  Transmission Date: 20190417
  Serious: No
  Sender: FDA-Public Use
  Company Number: US-US WORLDMEDS, LLC-USW201805-000740

PATIENT
  Sex: Male

DRUGS (2)
  1. NADOLOL. [Suspect]
     Active Substance: NADOLOL
  2. DILANTIN [Suspect]
     Active Substance: PHENYTOIN
     Dates: start: 2000

REACTIONS (2)
  - Peyronie^s disease [Unknown]
  - Amygdalotomy [Unknown]

NARRATIVE: CASE EVENT DATE: 2005
